FAERS Safety Report 20344553 (Version 1)
Quarter: 2022Q1

REPORT INFORMATION
  Report Type: Other
  Country: US (occurrence: US)
  Receive Date: 20220118
  Receipt Date: 20220118
  Transmission Date: 20220423
  Serious: Yes (Hospitalization)
  Sender: FDA-Public Use
  Company Number: US-HLS-202200041

PATIENT
  Age: 29 Year
  Sex: Male

DRUGS (3)
  1. CLOZAPINE [Suspect]
     Active Substance: CLOZAPINE
     Indication: Schizophrenia
     Route: 065
  2. LITHIUM [Suspect]
     Active Substance: LITHIUM
     Indication: Product used for unknown indication
     Route: 065
  3. ACETAMINOPHEN [Suspect]
     Active Substance: ACETAMINOPHEN
     Indication: Product used for unknown indication
     Route: 065

REACTIONS (13)
  - Acute coronary syndrome [Unknown]
  - Brain natriuretic peptide increased [Unknown]
  - Chest pain [Unknown]
  - C-reactive protein [Unknown]
  - Troponin increased [Unknown]
  - Red blood cell sedimentation rate [Unknown]
  - Electrocardiogram T wave amplitude decreased [Unknown]
  - Leukocytosis [Unknown]
  - Myocarditis [Unknown]
  - Pneumonia [Unknown]
  - Pulmonary embolism [Unknown]
  - Sinus tachycardia [Unknown]
  - Electrocardiogram ST segment elevation [Recovered/Resolved]
